FAERS Safety Report 9559558 (Version 1)
Quarter: 2013Q3

REPORT INFORMATION
  Report Type: Spontaneous
  Country: US (occurrence: None)
  Receive Date: 20130925
  Receipt Date: 20130925
  Transmission Date: 20140515
  Serious: Yes (Other)
  Sender: FDA-Public Use
  Company Number: ACO_37793_2013

PATIENT
  Age: 51 Year
  Sex: Female
  Weight: 79.4 kg

DRUGS (16)
  1. AMPYRA [Suspect]
     Indication: GAIT DISTURBANCE
     Route: 048
     Dates: start: 20121112, end: 20130111
  2. LISINOPRIL (LISINOPRIL) [Concomitant]
  3. PAROXETINE (PAROXETINE) [Concomitant]
  4. PRAVASTATIN (PRAVASTATIN SODIUM) [Concomitant]
  5. HYDROCODONE W/ACETAMINOPHEN (HYDROCODONE BITARTRATE, PARACETAMOL) [Concomitant]
  6. STOOL SOFTENER (DOCUSATE SODIUM) [Concomitant]
  7. LAXATIVES [Concomitant]
  8. MULTIVITAMIN (VITAMINS NOS) [Concomitant]
  9. ESTRADIOL (ESTRADIOL VALERATE) [Concomitant]
  10. BACLOFEN (BACLOFEN) [Concomitant]
  11. CETIRIZINE (CETIRIZINE) [Concomitant]
  12. GABAPENTIN (GABAPENTIN) [Concomitant]
  13. VITAMIN D (ERGOCALCIFEROL) [Concomitant]
  14. POTASSIUM (POTASSIUM BICARBONATE, POTASSIUM CHLORIDE) [Concomitant]
  15. FUROSEMIDE (FUROSEMIDE) [Concomitant]
  16. HYDROCODONE W/IBUPROFEN (HYDROCODONE W/IBUPROFEN) [Concomitant]

REACTIONS (3)
  - Neck surgery [None]
  - Therapeutic response unexpected [None]
  - Drug ineffective [None]
